FAERS Safety Report 11524639 (Version 4)
Quarter: 2015Q4

REPORT INFORMATION
  Report Type: Spontaneous
  Country: US (occurrence: US)
  Receive Date: 20150918
  Receipt Date: 20151228
  Transmission Date: 20160304
  Serious: Yes (Life-Threatening, Hospitalization, Other)
  Sender: FDA-Public Use
  Company Number: US-PFIZER INC-2015301989

PATIENT
  Age: 53 Year
  Sex: Male
  Weight: 83.99 kg

DRUGS (14)
  1. ZONISAMIDE. [Concomitant]
     Active Substance: ZONISAMIDE
     Indication: ANXIETY
     Dosage: 25 MG, 2X/DAY
     Route: 048
  2. TOPIRAMATE. [Concomitant]
     Active Substance: TOPIRAMATE
     Indication: RESTLESSNESS
     Dosage: 25 MG, 2X/DAY
     Route: 048
  3. LYRICA [Suspect]
     Active Substance: PREGABALIN
     Indication: PAIN
     Dosage: 50 MG, UNK
     Route: 048
     Dates: start: 2005
  4. LYRICA [Suspect]
     Active Substance: PREGABALIN
     Indication: ARTHRITIS
  5. QUETIAPINE [Concomitant]
     Active Substance: QUETIAPINE
     Indication: SLEEP DISORDER
     Dosage: 25 MG, ONE AT BEDTIME
     Route: 048
  6. TEMAZEPAM. [Concomitant]
     Active Substance: TEMAZEPAM
     Indication: SLEEP DISORDER
     Dosage: 15 MG, ONCE AT BEDTIME
     Route: 048
  7. CLONAZEPAM. [Concomitant]
     Active Substance: CLONAZEPAM
     Indication: ANXIETY
     Dosage: 0.5 MG, 2X/DAY
     Route: 048
  8. SERTRALINE [Concomitant]
     Active Substance: SERTRALINE HYDROCHLORIDE
     Indication: DEPRESSION
     Dosage: 100MG TABLET, TWO IN THE MORNING
     Route: 048
     Dates: start: 2007
  9. ZONISAMIDE. [Concomitant]
     Active Substance: ZONISAMIDE
     Indication: DEPRESSION
  10. ZONISAMIDE. [Concomitant]
     Active Substance: ZONISAMIDE
     Indication: RESTLESSNESS
  11. OXYCODONE [Concomitant]
     Active Substance: OXYCODONE
     Indication: PAIN
     Dosage: 10 MG, AS NEEDED
     Route: 048
  12. LYRICA [Suspect]
     Active Substance: PREGABALIN
     Indication: MYALGIA
     Dosage: 50 MG, 3X/DAY
     Route: 048
     Dates: end: 20150825
  13. MORPHINE SULFATE ER [Concomitant]
     Active Substance: MORPHINE SULFATE
     Indication: PAIN
     Dosage: 30 MG, 3X/DAY
     Route: 048
  14. LOVASTATIN. [Concomitant]
     Active Substance: LOVASTATIN
     Indication: BLOOD CHOLESTEROL ABNORMAL
     Dosage: 20 MG, ONE AT BEDTIME
     Route: 048

REACTIONS (13)
  - Blood cholesterol abnormal [Not Recovered/Not Resolved]
  - Amnesia [Unknown]
  - Pneumonia [Recovered/Resolved]
  - Condition aggravated [Not Recovered/Not Resolved]
  - Anxiety [Unknown]
  - Haemorrhage [Recovered/Resolved]
  - Pain [Not Recovered/Not Resolved]
  - Depression [Unknown]
  - Asthenia [Recovered/Resolved]
  - Arthritis [Not Recovered/Not Resolved]
  - Drug withdrawal syndrome [Recovered/Resolved]
  - Aspiration [Recovered/Resolved]
  - Dysarthria [Unknown]
